FAERS Safety Report 9835681 (Version 2)
Quarter: 2014Q1

REPORT INFORMATION
  Report Type: Spontaneous
  Country: NL (occurrence: NL)
  Receive Date: 20140122
  Receipt Date: 20140207
  Transmission Date: 20141002
  Serious: Yes (Hospitalization)
  Sender: FDA-Public Use
  Company Number: PHHY2014NL006182

PATIENT
  Age: 49 Year
  Sex: Female

DRUGS (4)
  1. ENOXAPARIN [Suspect]
     Indication: THROMBOSIS PROPHYLAXIS
     Dosage: 40 MG, QD
  2. DALTEPARIN SODIUM [Suspect]
     Indication: THROMBOLYSIS
     Dosage: 18000 IU, ONCE/SINGLE
  3. THYROXINE [Concomitant]
     Indication: HYPOTHYROIDISM
     Dosage: 50 UG, QD
  4. METOPROLOL [Concomitant]
     Indication: ARRHYTHMIA
     Dosage: 100 MG, QD

REACTIONS (19)
  - Circulatory collapse [Recovering/Resolving]
  - Cerebral infarction [Recovering/Resolving]
  - Aortic thrombosis [Recovering/Resolving]
  - Arterial thrombosis [Recovering/Resolving]
  - Heparin-induced thrombocytopenia [Recovering/Resolving]
  - Carotid artery thrombosis [Recovering/Resolving]
  - Asthenia [Recovering/Resolving]
  - Fatigue [Recovering/Resolving]
  - Headache [Recovering/Resolving]
  - Abnormal sensation in eye [Recovering/Resolving]
  - Neurologic neglect syndrome [Recovering/Resolving]
  - Visual acuity reduced [Recovering/Resolving]
  - Blindness cortical [Recovering/Resolving]
  - Hypoaesthesia [Recovering/Resolving]
  - Subclavian artery thrombosis [Recovering/Resolving]
  - Pain in extremity [Recovering/Resolving]
  - Peripheral coldness [Recovering/Resolving]
  - Cyanosis [Recovering/Resolving]
  - Pulse absent [Recovering/Resolving]
